FAERS Safety Report 5650078-2 (Version None)
Quarter: 2008Q1

REPORT INFORMATION
  Report Type: 
  Country: None (occurrence: None)
  Receive Date: 20080303
  Receipt Date: 20080226
  Transmission Date: 20080703
  Serious: Yes (Hospitalization)
  Sender: FDA-Public Use
  Company Number: 2008SP004108

PATIENT
  Sex: Female

DRUGS (1)
  1. TEMODAR [Suspect]
     Indication: DRUG USE FOR UNKNOWN INDICATION
     Dosage: 400 MG; QD; PO
     Route: 048
     Dates: start: 20080110, end: 20080125

REACTIONS (4)
  - ACCIDENTAL OVERDOSE [None]
  - HEPATIC FAILURE [None]
  - PANCYTOPENIA [None]
  - RASH [None]
